FAERS Safety Report 11618968 (Version 1)
Quarter: 2015Q4

REPORT INFORMATION
  Report Type: Spontaneous
  Country: FR (occurrence: FR)
  Receive Date: 20151012
  Receipt Date: 20151012
  Transmission Date: 20160304
  Serious: Yes (Other)
  Sender: FDA-Public Use
  Company Number: FR-GE HEALTHCARE MEDICAL DIAGNOSTICS-OMPQ-PR-1510S-2177

PATIENT
  Age: 93 Year
  Sex: Male

DRUGS (14)
  1. OMNIPAQUE [Suspect]
     Active Substance: IOHEXOL
     Indication: DIARRHOEA
     Route: 042
     Dates: start: 20150901, end: 20150901
  2. OMNIPAQUE [Suspect]
     Active Substance: IOHEXOL
     Indication: COLITIS
  3. OMNIPAQUE [Suspect]
     Active Substance: IOHEXOL
     Indication: DIAGNOSTIC PROCEDURE
  4. MOVICOL [Concomitant]
     Active Substance: POLYETHYLENE GLYCOL 3350\POTASSIUM CHLORIDE\SODIUM BICARBONATE\SODIUM CHLORIDE
  5. RISPERDAL [Concomitant]
     Active Substance: RISPERIDONE
  6. PLAVIX [Concomitant]
     Active Substance: CLOPIDOGREL BISULFATE
  7. EUPANTOL [Concomitant]
     Active Substance: PANTOPRAZOLE SODIUM
  8. DEBROXAT [Concomitant]
  9. PRETERAX [Concomitant]
     Active Substance: INDAPAMIDE\PERINDOPRIL
  10. SPIRIVA [Concomitant]
     Active Substance: TIOTROPIUM BROMIDE MONOHYDRATE
  11. LASILIX [Concomitant]
     Active Substance: FUROSEMIDE
  12. TEMERIT [Concomitant]
     Active Substance: NEBIVOLOL
  13. DAFALGAN [Concomitant]
     Active Substance: ACETAMINOPHEN
  14. IMOVANE [Concomitant]
     Active Substance: ZOPICLONE

REACTIONS (1)
  - Acute kidney injury [Recovered/Resolved]

NARRATIVE: CASE EVENT DATE: 20150902
